FAERS Safety Report 13509293 (Version 3)
Quarter: 2017Q4

REPORT INFORMATION
  Report Type: Report from Study
  Country: US (occurrence: US)
  Receive Date: 20170503
  Receipt Date: 20171018
  Transmission Date: 20180320
  Serious: Yes (Hospitalization, Other)
  Sender: FDA-Public Use
  Company Number: PHEH2017US012835

PATIENT
  Age: 86 Year
  Sex: Male
  Weight: 74.83 kg

DRUGS (15)
  1. LACTOBACILLUS ACIDOPHILUS [Concomitant]
     Active Substance: LACTOBACILLUS ACIDOPHILUS
     Indication: PRODUCT USED FOR UNKNOWN INDICATION
     Dosage: 1 DF, CHEWED,QD, QAM
     Route: 048
  2. ENTRESTO [Suspect]
     Active Substance: SACUBITRIL\VALSARTAN
     Dosage: 100 MG (49/51), BID
     Route: 048
     Dates: start: 20170321, end: 20170522
  3. COREG [Suspect]
     Active Substance: CARVEDILOL
     Dosage: 6.25 MG, QD (QPMMEAL)
     Route: 048
     Dates: start: 20170203
  4. NAMENDA [Concomitant]
     Active Substance: MEMANTINE HYDROCHLORIDE
     Indication: PRODUCT USED FOR UNKNOWN INDICATION
     Dosage: 14 MG, QD
     Route: 048
     Dates: start: 20170330
  5. COREG [Suspect]
     Active Substance: CARVEDILOL
     Indication: PRODUCT USED FOR UNKNOWN INDICATION
     Dosage: UNK
     Route: 048
  6. ATORVASTATIN [Concomitant]
     Active Substance: ATORVASTATIN
     Indication: PRODUCT USED FOR UNKNOWN INDICATION
     Dosage: 40 MG, QD (QHS)
     Route: 048
     Dates: start: 20161210
  7. ASPIRIN. [Concomitant]
     Active Substance: ASPIRIN
     Indication: PRODUCT USED FOR UNKNOWN INDICATION
     Dosage: 81 MG, QD (QAM)
     Route: 048
  8. ENTRESTO [Suspect]
     Active Substance: SACUBITRIL\VALSARTAN
     Indication: PRODUCT USED FOR UNKNOWN INDICATION
     Dosage: 50 MG (24/26), BID
     Route: 048
     Dates: start: 20170218
  9. ENTRESTO [Suspect]
     Active Substance: SACUBITRIL\VALSARTAN
     Dosage: 50 MG (SACUBITRIL 24 MG/ VALSARTAN 26 MG), BID
     Route: 065
     Dates: start: 20170522
  10. ARICEPT [Concomitant]
     Active Substance: DONEPEZIL HYDROCHLORIDE
     Indication: PRODUCT USED FOR UNKNOWN INDICATION
     Dosage: 10 MG, QD (QAMMEAL)
     Route: 048
     Dates: start: 20170216
  11. FLOMAX [Concomitant]
     Active Substance: TAMSULOSIN HYDROCHLORIDE
     Indication: PRODUCT USED FOR UNKNOWN INDICATION
     Dosage: 0.4 MG, QD (QPM)
     Route: 048
  12. TERAZOSIN [Concomitant]
     Active Substance: TERAZOSIN\TERAZOSIN HYDROCHLORIDE
     Indication: PRODUCT USED FOR UNKNOWN INDICATION
     Dosage: UNK
     Route: 065
  13. TERAZOSIN [Concomitant]
     Active Substance: TERAZOSIN\TERAZOSIN HYDROCHLORIDE
     Dosage: 1 DF (2MG), QD, QPM
     Route: 048
  14. LASIX [Suspect]
     Active Substance: FUROSEMIDE
     Indication: PRODUCT USED FOR UNKNOWN INDICATION
     Dosage: 20 MG, QD (3X WEEK)
     Route: 048
     Dates: start: 20170330
  15. BRILINTA [Concomitant]
     Active Substance: TICAGRELOR
     Indication: PRODUCT USED FOR UNKNOWN INDICATION
     Dosage: 90 MG, BID
     Route: 048
     Dates: start: 20170203

REACTIONS (25)
  - Heart rate increased [Unknown]
  - Orthostatic hypotension [Recovering/Resolving]
  - Blood urea increased [Unknown]
  - Dehydration [Unknown]
  - Dementia [Unknown]
  - Blood calcium decreased [Unknown]
  - Blood albumin decreased [Unknown]
  - Hypotension [Recovering/Resolving]
  - Decreased appetite [Unknown]
  - Anxiety [Unknown]
  - Ischaemic cardiomyopathy [Unknown]
  - Hyperlipidaemia [Unknown]
  - Benign prostatic hyperplasia [Unknown]
  - Red blood cell count increased [Unknown]
  - Haemoglobin decreased [Unknown]
  - Glomerular filtration rate decreased [Unknown]
  - Sinus bradycardia [Recovering/Resolving]
  - Extrasystoles [Unknown]
  - Dizziness [Unknown]
  - Weight decreased [Unknown]
  - Atrial fibrillation [Recovering/Resolving]
  - Hyperthyroidism [Unknown]
  - Haematocrit decreased [Unknown]
  - Platelet count decreased [Unknown]
  - Blood creatinine increased [Unknown]

NARRATIVE: CASE EVENT DATE: 20170515
